FAERS Safety Report 4550439-9 (Version None)
Quarter: 2005Q1

REPORT INFORMATION
  Report Type: 
  Country: None (occurrence: None)
  Receive Date: 20050112
  Receipt Date: 20041230
  Transmission Date: 20050727
  Serious: Yes (Hospitalization)
  Sender: FDA-Public Use
  Company Number: FR-GLAXOSMITHKLINE-B0363278A

PATIENT
  Age: 76 Year
  Sex: Female

DRUGS (4)
  1. DEROXAT [Suspect]
     Indication: ILL-DEFINED DISORDER
     Route: 048
  2. DEPAMIDE [Suspect]
     Route: 048
     Dates: end: 20041207
  3. ATHYMIL [Suspect]
     Route: 048
  4. ZOLPIDEM TARTRATE [Suspect]
     Route: 048

REACTIONS (11)
  - ANAEMIA MEGALOBLASTIC [None]
  - ASTHENIA [None]
  - BONE MARROW MYELOGRAM ABNORMAL [None]
  - DYSPNOEA EXERTIONAL [None]
  - EXTRAVASCULAR HAEMOLYSIS [None]
  - GASTRIC POLYPS [None]
  - GASTRITIS ATROPHIC [None]
  - HAEMOLYSIS [None]
  - HEPATITIS [None]
  - PALLOR [None]
  - PERNICIOUS ANAEMIA [None]
